FAERS Safety Report 9295578 (Version 2)
Quarter: 2013Q3

REPORT INFORMATION
  Report Type: Spontaneous
  Country: US (occurrence: US)
  Receive Date: 20130517
  Receipt Date: 20130719
  Transmission Date: 20140515
  Serious: Yes (Hospitalization)
  Sender: FDA-Public Use
  Company Number: US-SANOFI-AVENTIS-2013SA049128

PATIENT
  Age: 36 Year
  Sex: Female
  Weight: 46.72 kg

DRUGS (3)
  1. AUBAGIO [Suspect]
     Indication: MULTIPLE SCLEROSIS
     Route: 048
     Dates: start: 201303, end: 20130511
  2. OMEPRAZOLE [Concomitant]
     Indication: GASTROOESOPHAGEAL REFLUX DISEASE
     Route: 065
     Dates: start: 2009
  3. VITAMIN D [Concomitant]
     Indication: MULTIPLE SCLEROSIS
     Route: 065
     Dates: start: 2010

REACTIONS (3)
  - Pancreatitis acute [Recovered/Resolved]
  - Abdominal pain upper [Unknown]
  - Drug dose omission [Unknown]
